FAERS Safety Report 5927761-4 (Version None)
Quarter: 2008Q4

REPORT INFORMATION
  Report Type: 
  Country: None (occurrence: None)
  Receive Date: 20081023
  Receipt Date: 20080508
  Transmission Date: 20090506
  Serious: Yes (Hospitalization, Other)
  Sender: FDA-Public Use
  Company Number: US-ASTRAZENECA-2007UW29041

PATIENT
  Age: 19 Year
  Sex: Female

DRUGS (26)
  1. MERREM [Suspect]
     Indication: BRONCHITIS
     Route: 042
     Dates: start: 20071210, end: 20071219
  2. MERREM [Suspect]
     Indication: LUNG INFECTION
     Route: 042
     Dates: start: 20071210, end: 20071219
  3. MERREM [Suspect]
     Indication: CYSTIC FIBROSIS
     Route: 042
     Dates: start: 20071210, end: 20071219
  4. VX-770/ CODE NOT BROKEN [Suspect]
     Indication: CYSTIC FIBROSIS
     Dosage: 3 TABLETS (1 IN 12HR )
     Route: 048
     Dates: start: 20071006, end: 20071019
  5. VX-770/ CODE NOT BROKEN [Suspect]
     Dosage: 3 TABLETS (1 IN 12 HR)
     Route: 048
     Dates: start: 20071201, end: 20071214
  6. ULTRASE MT20 [Concomitant]
     Indication: PANCREATIC INSUFFICIENCY
     Route: 048
     Dates: start: 19950101
  7. PULMOZYME [Concomitant]
     Indication: CYSTIC FIBROSIS
     Dosage: 2.5 MG (1 IN 1 D)
     Route: 055
     Dates: start: 19960801
  8. ALBUTEROL [Concomitant]
     Indication: CYSTIC FIBROSIS
     Dosage: 4 OTHER (2 OTHER, 2  IN 1 D)
     Route: 055
     Dates: start: 19940101
  9. FLOVENT [Concomitant]
     Indication: ASTHMA
     Dosage: 110 -4 OTHER ( 2 OTHER, 2 IN 1 D)
     Route: 055
     Dates: start: 19970101
  10. ZINC GLUCONATE [Concomitant]
     Indication: MALABSORPTION
     Dosage: 2 OTHER (2 OTHER 1 IN 1 D)
     Route: 048
     Dates: start: 20070701
  11. TOBI [Concomitant]
     Indication: LUNG INFECTION PSEUDOMONAL
     Route: 055
     Dates: start: 20071020, end: 20071116
  12. TOBI [Concomitant]
     Indication: BRONCHITIS
     Route: 055
     Dates: start: 20071020, end: 20071116
  13. TOBI [Concomitant]
     Dosage: 600 MG (1 IN 1 DAY)
     Route: 042
     Dates: start: 20071210, end: 20071219
  14. TOBI [Concomitant]
     Dosage: 600 MG (1 IN 1 DAY)
     Route: 042
     Dates: start: 20071210, end: 20071219
  15. TOBI [Concomitant]
     Route: 055
     Dates: start: 20071211
  16. TOBI [Concomitant]
     Route: 055
     Dates: start: 20071211
  17. MULTI-VITAMIN [Concomitant]
  18. FISH OIL [Concomitant]
     Indication: MEDICAL DIET
     Dosage: 8 OTHER (4 OTHER, 2 IN 1D)
     Route: 048
     Dates: start: 19990101
  19. PROBIOTICA [Concomitant]
     Indication: ABDOMINAL PAIN UPPER
     Route: 048
     Dates: start: 19960101
  20. RHINOCORT [Concomitant]
     Indication: NASAL POLYPS
     Dosage: 2 OTHER (2 OTHER, 2 IN 1 D)
     Route: 045
     Dates: start: 20000101
  21. LOESTRIN 24 [Concomitant]
     Indication: CONTRACEPTION
     Dosage: 1 IN 1 D
     Route: 048
     Dates: start: 20060901
  22. BACTRIM DS [Concomitant]
     Indication: PYREXIA
     Dosage: 2 IN 1 D
     Route: 048
     Dates: start: 20071111, end: 20071124
  23. BACTRIM DS [Concomitant]
     Indication: CHEST PAIN
     Dosage: 2 IN 1 D
     Route: 048
     Dates: start: 20071111, end: 20071124
  24. TYLENOL [Concomitant]
     Indication: PYREXIA
     Route: 048
     Dates: start: 20071205, end: 20071206
  25. TYLENOL [Concomitant]
     Route: 048
     Dates: start: 20071208, end: 20071209
  26. HEPARIN [Concomitant]
     Indication: INTRAVENOUS CATHETER MANAGEMENT
     Dosage: FLUSH 3MG/ML PRN
     Route: 042
     Dates: start: 20071210

REACTIONS (6)
  - CHILLS [None]
  - DIARRHOEA [None]
  - NAUSEA [None]
  - PAIN [None]
  - PYREXIA [None]
  - RASH MACULAR [None]
